FAERS Safety Report 4508968-X (Version None)
Quarter: 2004Q4

REPORT INFORMATION
  Report Type: 
  Country: None (occurrence: None)
  Receive Date: 20041122
  Receipt Date: 20041122
  Transmission Date: 20050328
  Serious: Yes (Hospitalization)
  Sender: FDA-Public Use
  Company Number: None

PATIENT
  Age: 53 Year
  Sex: Female
  Weight: 50 kg

DRUGS (6)
  1. HYDROXYUREA [Suspect]
     Indication: POLYCYTHAEMIA VERA
     Dosage: 500 MG BID ORAL
     Route: 048
     Dates: start: 20010101, end: 20041118
  2. WARFARIN [Concomitant]
  3. LANSOPRAZOLE [Concomitant]
  4. PROPOXYOHENE/APAP [Concomitant]
  5. DIAZEPAM [Concomitant]
  6. METHADONE [Concomitant]

REACTIONS (1)
  - CELLULITIS [None]
